FAERS Safety Report 12520069 (Version 2)
Quarter: 2016Q3

REPORT INFORMATION
  Report Type: Report from Study
  Country: GB (occurrence: GB)
  Receive Date: 20160630
  Receipt Date: 20160804
  Transmission Date: 20161109
  Serious: Yes (Hospitalization)
  Sender: FDA-Public Use
  Company Number: GB-ABBVIE-16K-167-1661337-00

PATIENT
  Age: 28 Year
  Sex: Male

DRUGS (5)
  1. AZATHIOPRINE. [Concomitant]
     Active Substance: AZATHIOPRINE
     Indication: CROHN^S DISEASE
     Route: 048
     Dates: start: 20160616
  2. HUMIRA [Suspect]
     Active Substance: ADALIMUMAB
     Indication: CROHN^S DISEASE
     Route: 058
     Dates: start: 20140624, end: 20160607
  3. PARACETAMOL [Concomitant]
     Active Substance: ACETAMINOPHEN
     Indication: PRODUCT USED FOR UNKNOWN INDICATION
     Route: 042
     Dates: start: 20160711, end: 20160711
  4. INFLIXIMAB [Concomitant]
     Active Substance: INFLIXIMAB
     Indication: PRODUCT USED FOR UNKNOWN INDICATION
     Route: 058
  5. INFLIXIMAB [Concomitant]
     Active Substance: INFLIXIMAB
     Route: 058
     Dates: start: 20160607

REACTIONS (30)
  - Inflammatory marker test [Unknown]
  - Abscess intestinal [Unknown]
  - Red cell distribution width increased [Not Recovered/Not Resolved]
  - Prothrombin time prolonged [Unknown]
  - Gastrointestinal wall thickening [Unknown]
  - Enterocolonic fistula [Unknown]
  - Activated partial thromboplastin time shortened [Unknown]
  - Red blood cell count decreased [Not Recovered/Not Resolved]
  - Abscess [Unknown]
  - Pain [Recovered/Resolved]
  - Hydronephrosis [Unknown]
  - Crohn^s disease [Recovering/Resolving]
  - Fistula [Unknown]
  - Amylase increased [Unknown]
  - Pelvic mass [Unknown]
  - Diarrhoea [Recovered/Resolved]
  - Enteritis [Unknown]
  - Intestinal mass [Unknown]
  - Nausea [Recovered/Resolved]
  - Renal cyst [Unknown]
  - Blood calcium increased [Unknown]
  - Intestinal dilatation [Unknown]
  - Volvulus of small bowel [Unknown]
  - Nuclear magnetic resonance imaging abdominal abnormal [Unknown]
  - Arterial disorder [Unknown]
  - Pain [Recovered/Resolved]
  - Irritable bowel syndrome [Unknown]
  - Platelet count increased [Not Recovered/Not Resolved]
  - Malaise [Unknown]
  - Haemoglobin decreased [Not Recovered/Not Resolved]

NARRATIVE: CASE EVENT DATE: 20160502
